FAERS Safety Report 7052425-6 (Version None)
Quarter: 2010Q4

REPORT INFORMATION
  Report Type: 
  Country: None (occurrence: None)
  Receive Date: 20101019
  Receipt Date: 20101011
  Transmission Date: 20110411
  Serious: Yes (Hospitalization)
  Sender: FDA-Public Use
  Company Number: CZ-MILLENNIUM PHARMACEUTICALS, INC.-2010-05195

PATIENT

DRUGS (3)
  1. VELCADE [Suspect]
     Indication: PRIMARY AMYLOIDOSIS
  2. CYCLOPHOSPHAMIDE [Suspect]
     Indication: PRIMARY AMYLOIDOSIS
  3. DEXAMETHASONE [Suspect]
     Indication: PRIMARY AMYLOIDOSIS

REACTIONS (1)
  - DIABETES MELLITUS [None]
